FAERS Safety Report 24679284 (Version 1)
Quarter: 2024Q4

REPORT INFORMATION
  Report Type: Spontaneous
  Country: CN (occurrence: CN)
  Receive Date: 20241129
  Receipt Date: 20241129
  Transmission Date: 20250114
  Serious: Yes (Other)
  Sender: RANBAXY
  Company Number: CN-SUN PHARMACEUTICAL INDUSTRIES LTD-2024R1-481832

PATIENT
  Age: 40 Year
  Sex: Male

DRUGS (3)
  1. GEMCITABINE [Suspect]
     Active Substance: GEMCITABINE
     Indication: Chemotherapy
     Dosage: 1.6 GRAM
     Route: 065
  2. ENDOSTATIN [Suspect]
     Active Substance: ENDOSTATIN
     Indication: Chemotherapy
     Dosage: 210 MILLIGRAM
     Route: 065
  3. NEDAPLATIN [Suspect]
     Active Substance: NEDAPLATIN
     Indication: Chemotherapy
     Dosage: 40 MILLIGRAM
     Route: 065

REACTIONS (2)
  - Disease progression [Unknown]
  - Drug ineffective [Unknown]
